FAERS Safety Report 17821256 (Version 4)
Quarter: 2020Q3

REPORT INFORMATION
  Report Type: Spontaneous
  Country: US (occurrence: US)
  Receive Date: 20200525
  Receipt Date: 20200824
  Transmission Date: 20201102
  Serious: No
  Sender: FDA-Public Use
  Company Number: US-PFIZER INC-2019452168

PATIENT
  Age: 62 Year
  Sex: Female
  Weight: 63.5 kg

DRUGS (3)
  1. FORTEO [Concomitant]
     Active Substance: TERIPARATIDE
     Indication: BONE DISORDER
     Dosage: 20 UG, 1X/DAY (EVERY MORNING)
  2. LYRICA [Suspect]
     Active Substance: PREGABALIN
     Indication: FIBROMYALGIA
     Dosage: 150 MG, 2X/DAY
  3. LYRICA [Suspect]
     Active Substance: PREGABALIN
     Indication: PROCEDURAL PAIN
     Dosage: 100 MG, 2X/DAY
     Route: 048

REACTIONS (2)
  - Drug withdrawal syndrome [Unknown]
  - Weight increased [Not Recovered/Not Resolved]

NARRATIVE: CASE EVENT DATE: 2019
